FAERS Safety Report 4274664-X (Version None)
Quarter: 2004Q1

REPORT INFORMATION
  Report Type: 
  Country: None (occurrence: None)
  Receive Date: 20040115
  Receipt Date: 20040105
  Transmission Date: 20041129
  Serious: Yes (Disabling)
  Sender: FDA-Public Use
  Company Number: 200410010GDS

PATIENT
  Age: 76 Year

DRUGS (5)
  1. ASPIRIN [Suspect]
     Indication: CEREBROVASCULAR ACCIDENT PROPHYLAXIS
     Dosage: ORAL
     Route: 048
     Dates: start: 20031118
  2. CLOPIDOGREL [Suspect]
     Indication: CEREBROVASCULAR ACCIDENT PROPHYLAXIS
     Dates: start: 20031118
  3. MICARDIS [Suspect]
     Indication: CEREBROVASCULAR ACCIDENT PROPHYLAXIS
     Dosage: ORAL
     Route: 048
     Dates: start: 20031118
  4. NITRENDIPINE [Suspect]
     Indication: HYPERTENSION
     Dosage: 40 MG, TOTAL DAILY, ORAL
     Route: 048
  5. CARVEDILOL [Suspect]
     Indication: HYPERTENSION
     Dosage: 50 MG, TOTAL DAILY, ORAL
     Route: 048
     Dates: start: 20031125

REACTIONS (2)
  - DYSPNOEA [None]
  - OEDEMA [None]
